FAERS Safety Report 6133617-7 (Version None)
Quarter: 2009Q1

REPORT INFORMATION
  Report Type: 
  Country: None (occurrence: None)
  Receive Date: 20090326
  Receipt Date: 20090320
  Transmission Date: 20090719
  Serious: Yes (Hospitalization)
  Sender: FDA-Public Use
  Company Number: FR-MERCK-0903FRA00063

PATIENT
  Age: 83 Year
  Sex: Female

DRUGS (7)
  1. FOSAMAX [Suspect]
     Indication: OSTEOPOROSIS
     Route: 048
     Dates: start: 20080101, end: 20081230
  2. CALCIUM CARBONATE AND CHOLECALCIFEROL [Concomitant]
     Indication: OSTEOPOROSIS
     Route: 048
     Dates: start: 20080601, end: 20081224
  3. ANASTROZOLE [Concomitant]
     Indication: BREAST NEOPLASM
     Route: 048
     Dates: start: 20030201, end: 20080601
  4. BISOPROLOL FUMARATE [Concomitant]
     Route: 048
  5. LERCANIDIPINE HYDROCHLORIDE [Concomitant]
     Route: 048
  6. TRIMETAZIDINE HYDROCHLORIDE [Concomitant]
     Route: 048
     Dates: start: 20061101
  7. FENOFIBRATE [Concomitant]
     Indication: HYPERCHOLESTEROLAEMIA
     Route: 065
     Dates: start: 20080924, end: 20081217

REACTIONS (3)
  - GASTRIC ULCER [None]
  - LARGE INTESTINAL ULCER [None]
  - OESOPHAGITIS [None]
